FAERS Safety Report 9735492 (Version 1)
Quarter: 2013Q4

REPORT INFORMATION
  Report Type: Spontaneous
  Country: US (occurrence: US)
  Receive Date: 20131206
  Receipt Date: 20131206
  Transmission Date: 20140711
  Serious: No
  Sender: FDA-Public Use
  Company Number: US-GILEAD-2009-0023320

PATIENT
  Sex: Female
  Weight: 76.2 kg

DRUGS (5)
  1. LETAIRIS [Suspect]
     Indication: PULMONARY ARTERIAL HYPERTENSION
     Route: 048
     Dates: start: 20090722
  2. FUROSEMIDE [Concomitant]
  3. NIFEDIAC [Concomitant]
  4. JUICE PLUS FIBRE [Concomitant]
  5. KLOR-CON [Concomitant]

REACTIONS (3)
  - Nausea [Unknown]
  - Dizziness [Unknown]
  - Diarrhoea [Unknown]
